APPROVED DRUG PRODUCT: OXAZEPAM
Active Ingredient: OXAZEPAM
Strength: 30MG
Dosage Form/Route: CAPSULE;ORAL
Application: A071026 | Product #001 | TE Code: AB
Applicant: TP ANDA HOLDINGS LLC
Approved: Aug 10, 1987 | RLD: No | RS: No | Type: RX